FAERS Safety Report 5763930-4 (Version None)
Quarter: 2008Q2

REPORT INFORMATION
  Report Type: 
  Country: None (occurrence: None)
  Receive Date: 20080604
  Receipt Date: 20080522
  Transmission Date: 20081010
  Serious: Yes (Hospitalization)
  Sender: FDA-Public Use
  Company Number: US023609

PATIENT
  Sex: Female

DRUGS (3)
  1. ACTIQ [Suspect]
     Indication: BACK PAIN
     Dosage: 1200 UG BID BUCCAL
     Route: 002
     Dates: start: 20030101
  2. FENTANYL TRANSDERMAL SYSTEM [Suspect]
     Indication: BACK PAIN
     Dosage: 200 UG 3 DAYS TOPICAL
     Route: 061
  3. PERCOCET [Suspect]
     Indication: BACK PAIN

REACTIONS (23)
  - APPENDIX DISORDER [None]
  - ARTHRALGIA [None]
  - BACK PAIN [None]
  - BONE PAIN [None]
  - CERVIX DISORDER [None]
  - CHILLS [None]
  - CONDITION AGGRAVATED [None]
  - CONVULSION [None]
  - DENTAL CARIES [None]
  - DIVERTICULAR PERFORATION [None]
  - DIVERTICULITIS [None]
  - DRUG INEFFECTIVE [None]
  - DRUG WITHDRAWAL SYNDROME [None]
  - GALLBLADDER DISORDER [None]
  - GINGIVAL DISORDER [None]
  - ILEUS PARALYTIC [None]
  - MYALGIA [None]
  - OVARIAN DISORDER [None]
  - PAIN [None]
  - PYREXIA [None]
  - SEPSIS [None]
  - STAPHYLOCOCCAL INFECTION [None]
  - UTERINE DISORDER [None]
